FAERS Safety Report 19054159 (Version 1)
Quarter: 2021Q1

REPORT INFORMATION
  Report Type: Spontaneous
  Country: US (occurrence: US)
  Receive Date: 20210324
  Receipt Date: 20210324
  Transmission Date: 20210420
  Serious: Yes (Other)
  Sender: FDA-Public Use
  Company Number: US-SA-2021SA096872

PATIENT
  Age: 43 Year
  Sex: Male

DRUGS (1)
  1. ZANTAC [Suspect]
     Active Substance: RANITIDINE HYDROCHLORIDE
     Indication: DYSPEPSIA
     Dosage: 300 MG
     Dates: start: 199501, end: 202001

REACTIONS (4)
  - Lung neoplasm malignant [Unknown]
  - Renal cancer stage III [Unknown]
  - Prostate cancer [Unknown]
  - Vascular neoplasm [Unknown]

NARRATIVE: CASE EVENT DATE: 20111001
